FAERS Safety Report 21325071 (Version 1)
Quarter: 2022Q3

REPORT INFORMATION
  Report Type: Spontaneous
  Country: ZA (occurrence: ZA)
  Receive Date: 20220912
  Receipt Date: 20220912
  Transmission Date: 20221027
  Serious: Yes (Other)
  Sender: FDA-Public Use
  Company Number: ZA-PFIZER INC-202201138222

PATIENT
  Sex: Female

DRUGS (1)
  1. CYTOTEC [Suspect]
     Active Substance: MISOPROSTOL
     Dosage: UNK

REACTIONS (4)
  - Contraindicated product administered [Unknown]
  - Haemorrhage in pregnancy [Unknown]
  - Vaginal discharge [Unknown]
  - Maternal exposure during pregnancy [Unknown]
